FAERS Safety Report 7120788-9 (Version None)
Quarter: 2010Q4

REPORT INFORMATION
  Report Type: 
  Country: None (occurrence: None)
  Receive Date: 20101117
  Receipt Date: 20101117
  Transmission Date: 20110411
  Serious: Yes (Other)
  Sender: FDA-Public Use
  Company Number: None

PATIENT
  Age: 73 Year
  Sex: Male

DRUGS (1)
  1. BYETTA INJECT/PEN 2.4ML- 10MCG AMYLIN [Suspect]
     Indication: DIABETES MELLITUS
     Dosage: USE 1 INJECTION (10MCG) UNDER THE SKIN TWICE A DAY
     Route: 058

REACTIONS (1)
  - PRODUCT PACKAGING QUANTITY ISSUE [None]
